FAERS Safety Report 17066677 (Version 1)
Quarter: 2019Q4

REPORT INFORMATION
  Report Type: Spontaneous
  Country: DE (occurrence: DE)
  Receive Date: 20191122
  Receipt Date: 20191122
  Transmission Date: 20200122
  Serious: Yes (Hospitalization)
  Sender: FDA-Public Use
  Company Number: DE-MYLANLABS-2019M1113395

PATIENT
  Age: 65 Year
  Sex: Male
  Weight: 99 kg

DRUGS (8)
  1. CARVEDILOL. [Concomitant]
     Active Substance: CARVEDILOL
     Dosage: 6.25 MILLIGRAM 1-0-1-0, TABLET
     Route: 048
  2. TORASEMIDE [Suspect]
     Active Substance: TORSEMIDE
     Indication: PRODUCT USED FOR UNKNOWN INDICATION
     Dosage: 20 MILLIGRAM, 1-1-0-0, TABLET
     Route: 048
  3. KALIUM VERLA [Concomitant]
     Active Substance: POTASSIUM CITRATE
     Dosage: 2157.8 MILLIGRAM, 1-0-0-0, POUCH
     Route: 048
  4. LACTULOSE. [Concomitant]
     Active Substance: LACTULOSE
     Dosage: 6.67 GRAM, 1-1-1-0, SAFT
     Route: 048
  5. SPIRONOLACTON [Suspect]
     Active Substance: SPIRONOLACTONE
     Indication: PRODUCT USED FOR UNKNOWN INDICATION
     Dosage: 300 MILLIGRAM, 1-0-0-0, TABLET
     Route: 048
  6. PANTOPRAZOL                        /01263201/ [Concomitant]
     Active Substance: PANTOPRAZOLE
     Dosage: 40 MILLIGRAM, 1-0-0-0, TABLET
     Route: 048
  7. METOCLOPRAMID                      /00041901/ [Concomitant]
     Active Substance: METOCLOPRAMIDE
     Dosage: 10 GRAM, 1-0-0-0, TABLET
     Route: 048
  8. RIFAXIMIN. [Concomitant]
     Active Substance: RIFAXIMIN
     Dosage: 550 MILLIGRAM, 1-0-1-0, TABLET
     Route: 048

REACTIONS (7)
  - Oedema peripheral [Unknown]
  - General physical health deterioration [Unknown]
  - Dizziness [Unknown]
  - Renal impairment [Unknown]
  - Electrolyte imbalance [Unknown]
  - Acute kidney injury [Unknown]
  - Ascites [Unknown]
